FAERS Safety Report 13096082 (Version 2)
Quarter: 2017Q2

REPORT INFORMATION
  Report Type: Spontaneous
  Country: FR (occurrence: FR)
  Receive Date: 20170109
  Receipt Date: 20170525
  Transmission Date: 20170830
  Serious: Yes (Death)
  Sender: FDA-Public Use
  Company Number: FR-ROCHE-1875653

PATIENT
  Age: 63 Year
  Sex: Male

DRUGS (24)
  1. BACTRIM [Suspect]
     Active Substance: SULFAMETHOXAZOLE\TRIMETHOPRIM
     Indication: PRODUCT USED FOR UNKNOWN INDICATION
     Route: 065
     Dates: start: 20161115, end: 20161203
  2. PANTOPRAZOLE [Suspect]
     Active Substance: PANTOPRAZOLE
     Indication: PRODUCT USED FOR UNKNOWN INDICATION
     Route: 065
     Dates: end: 20161205
  3. KARDEGIC [Suspect]
     Active Substance: ASPIRIN LYSINE
     Indication: PRODUCT USED FOR UNKNOWN INDICATION
     Route: 065
     Dates: start: 20161126, end: 20161203
  4. CIPROFLOXACINE [Suspect]
     Active Substance: CIPROFLOXACIN
     Route: 065
     Dates: start: 20161111, end: 20161120
  5. MYCOPHENOLIC ACID. [Concomitant]
     Active Substance: MYCOPHENOLIC ACID
     Route: 065
     Dates: end: 20161120
  6. FOSFOCINE [Concomitant]
     Active Substance: FOSFOMYCIN
     Route: 065
     Dates: start: 20161110, end: 20161119
  7. AMIKACIN [Concomitant]
     Active Substance: AMIKACIN
  8. URAPIDIL [Concomitant]
     Active Substance: URAPIDIL
  9. GENTAMICINE PANPHARMA [Suspect]
     Active Substance: GENTAMICIN
     Indication: PRODUCT USED FOR UNKNOWN INDICATION
     Route: 065
     Dates: start: 20161125, end: 20161206
  10. CIPROFLOXACINE [Suspect]
     Active Substance: CIPROFLOXACIN
     Indication: PRODUCT USED FOR UNKNOWN INDICATION
     Route: 065
     Dates: start: 20161203, end: 20161205
  11. AMLODIPINE [Suspect]
     Active Substance: AMLODIPINE BESYLATE
     Indication: PRODUCT USED FOR UNKNOWN INDICATION
     Route: 065
     Dates: start: 20161116, end: 20161203
  12. VALGANCICLOVIR MYLAN [Suspect]
     Active Substance: VALGANCICLOVIR
     Indication: PRODUCT USED FOR UNKNOWN INDICATION
     Route: 065
     Dates: start: 20161116, end: 20161203
  13. IMIPENEM CILASTATINE MYLAN [Suspect]
     Active Substance: IMIPENEM
     Indication: PRODUCT USED FOR UNKNOWN INDICATION
     Route: 065
     Dates: start: 20161204
  14. CANCIDAS [Suspect]
     Active Substance: CASPOFUNGIN ACETATE
     Route: 065
     Dates: start: 20161204, end: 20161205
  15. TACROLIMUS. [Concomitant]
     Active Substance: TACROLIMUS
  16. COLIMYCINE (COLISTIN SULFATE) [Suspect]
     Active Substance: COLISTIN SULFATE
     Route: 065
     Dates: start: 20161213
  17. PREDNISONE. [Concomitant]
     Active Substance: PREDNISONE
  18. VANCOMYCIN MYLAN [Suspect]
     Active Substance: VANCOMYCIN
     Indication: PRODUCT USED FOR UNKNOWN INDICATION
     Route: 065
     Dates: start: 20161204, end: 20161207
  19. COLIMYCINE (COLISTIN SULFATE) [Suspect]
     Active Substance: COLISTIN SULFATE
     Indication: PRODUCT USED FOR UNKNOWN INDICATION
     Route: 065
     Dates: start: 20161125, end: 20161205
  20. IMIPENEM CILASTATINE MYLAN [Suspect]
     Active Substance: IMIPENEM
     Route: 065
     Dates: start: 20161027, end: 20161125
  21. TRAMADOL HYDROCHLORIDE. [Suspect]
     Active Substance: TRAMADOL HYDROCHLORIDE
     Indication: PRODUCT USED FOR UNKNOWN INDICATION
     Route: 065
     Dates: start: 20161205, end: 20161209
  22. METHYLPREDNISOLONE MYLAN [Suspect]
     Active Substance: METHYLPREDNISOLONE
     Indication: PRODUCT USED FOR UNKNOWN INDICATION
     Route: 065
     Dates: start: 20161204
  23. CANCIDAS [Suspect]
     Active Substance: CASPOFUNGIN ACETATE
     Indication: PRODUCT USED FOR UNKNOWN INDICATION
     Route: 065
     Dates: start: 20161027, end: 20161120
  24. CALCIPARINE [Concomitant]
     Active Substance: HEPARIN CALCIUM

REACTIONS (2)
  - Stevens-Johnson syndrome [Fatal]
  - Pancytopenia [Fatal]

NARRATIVE: CASE EVENT DATE: 20161204
